FAERS Safety Report 4312312-0 (Version None)
Quarter: 2004Q1

REPORT INFORMATION
  Report Type: 
  Country: None (occurrence: None)
  Receive Date: 20040305
  Receipt Date: 20040223
  Transmission Date: 20041129
  Serious: Yes (Hospitalization)
  Sender: FDA-Public Use
  Company Number: ES-GLAXOSMITHKLINE-B0324503A

PATIENT
  Age: 76 Year
  Sex: Male

DRUGS (5)
  1. SALBUTAMOL [Suspect]
     Indication: ASTHMA
     Route: 055
     Dates: start: 20031004
  2. ACETYLCYSTEINE [Suspect]
     Indication: BRONCHOPULMONARY DISEASE
     Dosage: 600MG PER DAY
     Route: 048
     Dates: start: 20031006, end: 20031008
  3. LEVOFLOXACIN [Suspect]
     Indication: PNEUMONIA
     Dosage: 500MG PER DAY
     Route: 048
     Dates: start: 20031004, end: 20031010
  4. METAMIZOL [Suspect]
     Indication: DRUG USE FOR UNKNOWN INDICATION
     Dosage: 1.7G PER DAY
     Route: 048
     Dates: start: 20031006, end: 20031011
  5. IPRATROPIUM BROMIDE [Suspect]
     Indication: ASTHMA
     Route: 065
     Dates: start: 20031004

REACTIONS (2)
  - CLOSTRIDIUM COLITIS [None]
  - DIARRHOEA [None]
